FAERS Safety Report 11718183 (Version 1)
Quarter: 2015Q4

REPORT INFORMATION
  Report Type: Spontaneous
  Country: BR (occurrence: BR)
  Receive Date: 20151110
  Receipt Date: 20151110
  Transmission Date: 20160304
  Serious: Yes (Death, Hospitalization)
  Sender: FDA-Public Use
  Company Number: BR-JNJFOC-20151106058

PATIENT
  Sex: Male

DRUGS (1)
  1. REMICADE [Suspect]
     Active Substance: INFLIXIMAB
     Indication: CROHN^S DISEASE
     Route: 042

REACTIONS (6)
  - Pneumonia [Fatal]
  - Cardiac failure [Fatal]
  - Immune system disorder [Not Recovered/Not Resolved]
  - Infection [Fatal]
  - Asthenia [Not Recovered/Not Resolved]
  - Underweight [Not Recovered/Not Resolved]
